FAERS Safety Report 9679093 (Version 3)
Quarter: 2013Q4

REPORT INFORMATION
  Report Type: Spontaneous
  Country: JP (occurrence: JP)
  Receive Date: 20131108
  Receipt Date: 20131122
  Transmission Date: 20140711
  Serious: Yes (Death, Other)
  Sender: FDA-Public Use
  Company Number: JP-GE HEALTHCARE MEDICAL DIAGNOSTICS-OMPQ-PR-1311S-1289

PATIENT
  Age: 74 Year
  Sex: Female

DRUGS (6)
  1. OMNIPAQUE [Suspect]
     Indication: HAEMORRHAGE
     Route: 042
     Dates: start: 20131030, end: 20131030
  2. OMNIPAQUE [Suspect]
     Indication: DIAGNOSTIC PROCEDURE
  3. HANP [Concomitant]
     Route: 042
  4. TAKEPRON [Concomitant]
     Route: 042
  5. VASOLAN [Concomitant]
     Route: 042
  6. LACTEC [Concomitant]
     Route: 042

REACTIONS (4)
  - Ventricular fibrillation [Fatal]
  - Haematocrit decreased [Unknown]
  - Haemoglobin decreased [Unknown]
  - Platelet count decreased [Unknown]
